FAERS Safety Report 21360621 (Version 4)
Quarter: 2023Q1

REPORT INFORMATION
  Report Type: Report from Study
  Country: US (occurrence: US)
  Receive Date: 20220921
  Receipt Date: 20230125
  Transmission Date: 20230418
  Serious: Yes (Hospitalization, Other)
  Sender: FDA-Public Use
  Company Number: US-TAKEDA-2022TUS049265

PATIENT
  Sex: Female

DRUGS (25)
  1. TEDUGLUTIDE [Suspect]
     Active Substance: TEDUGLUTIDE
     Indication: Short-bowel syndrome
     Dosage: 2.77 MILLIGRAM, QD
     Route: 058
     Dates: start: 202205
  2. TEDUGLUTIDE [Suspect]
     Active Substance: TEDUGLUTIDE
     Indication: Short-bowel syndrome
     Dosage: 2.77 MILLIGRAM, QD
     Route: 058
     Dates: start: 202205
  3. TEDUGLUTIDE [Suspect]
     Active Substance: TEDUGLUTIDE
     Indication: Short-bowel syndrome
     Dosage: 2.77 MILLIGRAM, QD
     Route: 058
     Dates: start: 202205
  4. TEDUGLUTIDE [Suspect]
     Active Substance: TEDUGLUTIDE
     Indication: Short-bowel syndrome
     Dosage: 2.77 MILLIGRAM, QD
     Route: 058
     Dates: start: 202205
  5. TEDUGLUTIDE [Suspect]
     Active Substance: TEDUGLUTIDE
     Dosage: 2.77 MILLIGRAM, QD
     Route: 058
     Dates: start: 202206
  6. TEDUGLUTIDE [Suspect]
     Active Substance: TEDUGLUTIDE
     Dosage: 2.77 MILLIGRAM, QD
     Route: 058
     Dates: start: 202206
  7. TEDUGLUTIDE [Suspect]
     Active Substance: TEDUGLUTIDE
     Dosage: 2.77 MILLIGRAM, QD
     Route: 058
     Dates: start: 202206
  8. TEDUGLUTIDE [Suspect]
     Active Substance: TEDUGLUTIDE
     Dosage: 2.77 MILLIGRAM, QD
     Route: 058
     Dates: start: 202206
  9. TEDUGLUTIDE [Suspect]
     Active Substance: TEDUGLUTIDE
     Dosage: 2.77 MILLIGRAM, QD
     Route: 058
     Dates: start: 20220615
  10. TEDUGLUTIDE [Suspect]
     Active Substance: TEDUGLUTIDE
     Dosage: 2.77 MILLIGRAM, QD
     Route: 058
     Dates: start: 20220615
  11. TEDUGLUTIDE [Suspect]
     Active Substance: TEDUGLUTIDE
     Dosage: 2.77 MILLIGRAM, QD
     Route: 058
     Dates: start: 20220615
  12. TEDUGLUTIDE [Suspect]
     Active Substance: TEDUGLUTIDE
     Dosage: 2.77 MILLIGRAM, QD
     Route: 058
     Dates: start: 20220615
  13. TEDUGLUTIDE [Suspect]
     Active Substance: TEDUGLUTIDE
     Dosage: 2.77 MILLIGRAM, QD
     Route: 058
     Dates: start: 20220620
  14. TEDUGLUTIDE [Suspect]
     Active Substance: TEDUGLUTIDE
     Dosage: 2.77 MILLIGRAM, QD
     Route: 058
     Dates: start: 20220620
  15. TEDUGLUTIDE [Suspect]
     Active Substance: TEDUGLUTIDE
     Dosage: 2.77 MILLIGRAM, QD
     Route: 058
     Dates: start: 20220620
  16. TEDUGLUTIDE [Suspect]
     Active Substance: TEDUGLUTIDE
     Dosage: 2.77 MILLIGRAM, QD
     Route: 058
     Dates: start: 20220620
  17. TEDUGLUTIDE [Suspect]
     Active Substance: TEDUGLUTIDE
     Dosage: 2.77 MILLIGRAM, QD
     Route: 058
     Dates: start: 20220621
  18. TEDUGLUTIDE [Suspect]
     Active Substance: TEDUGLUTIDE
     Dosage: 2.77 MILLIGRAM, QD
     Route: 058
     Dates: start: 20220621
  19. TEDUGLUTIDE [Suspect]
     Active Substance: TEDUGLUTIDE
     Dosage: 2.77 MILLIGRAM, QD
     Route: 058
     Dates: start: 20220621
  20. TEDUGLUTIDE [Suspect]
     Active Substance: TEDUGLUTIDE
     Dosage: 2.77 MILLIGRAM, QD
     Route: 058
     Dates: start: 20220621
  21. TEDUGLUTIDE [Suspect]
     Active Substance: TEDUGLUTIDE
     Dosage: 2.77 MILLIGRAM, QD
     Route: 058
     Dates: start: 20220907
  22. TEDUGLUTIDE [Suspect]
     Active Substance: TEDUGLUTIDE
     Dosage: 2.77 MILLIGRAM, QD
     Route: 058
     Dates: start: 20220907
  23. TEDUGLUTIDE [Suspect]
     Active Substance: TEDUGLUTIDE
     Dosage: 2.77 MILLIGRAM, QD
     Route: 058
     Dates: start: 20220907
  24. TEDUGLUTIDE [Suspect]
     Active Substance: TEDUGLUTIDE
     Dosage: 2.77 MILLIGRAM, QD
     Route: 058
     Dates: start: 20220907
  25. ZOFRAN [Suspect]
     Active Substance: ONDANSETRON HYDROCHLORIDE
     Indication: Product used for unknown indication
     Dosage: UNK
     Route: 065

REACTIONS (11)
  - Cholecystitis [Unknown]
  - Nephrolithiasis [Unknown]
  - Lumbar vertebral fracture [Unknown]
  - Peripheral swelling [Unknown]
  - Gastrointestinal stoma output abnormal [Unknown]
  - Fall [Unknown]
  - Weight decreased [Unknown]
  - Somnolence [Unknown]
  - Nausea [Not Recovered/Not Resolved]
  - Device leakage [Unknown]
  - Product dose omission issue [Recovered/Resolved]
